FAERS Safety Report 11632193 (Version 1)
Quarter: 2015Q4

REPORT INFORMATION
  Report Type: Spontaneous
  Country: US (occurrence: None)
  Receive Date: 20151014
  Receipt Date: 20151014
  Transmission Date: 20160304
  Serious: Yes (Hospitalization, Other)
  Sender: FDA-Public Use
  Company Number: None

PATIENT
  Age: 46 Year
  Sex: Female
  Weight: 68.04 kg

DRUGS (2)
  1. BELSOMRA [Suspect]
     Active Substance: SUVOREXANT
     Indication: INSOMNIA
     Route: 048
     Dates: start: 20150928, end: 20151006
  2. CARVIDILLOL [Concomitant]

REACTIONS (6)
  - Feeling abnormal [None]
  - Impaired work ability [None]
  - Insomnia [None]
  - Initial insomnia [None]
  - Crying [None]
  - Feeding disorder [None]

NARRATIVE: CASE EVENT DATE: 20151006
